FAERS Safety Report 11843975 (Version 2)
Quarter: 2015Q4

REPORT INFORMATION
  Report Type: Spontaneous
  Country: JP (occurrence: JP)
  Receive Date: 20151217
  Receipt Date: 20151223
  Transmission Date: 20160305
  Serious: Yes (Other)
  Sender: FDA-Public Use
  Company Number: PHJP2015JP022722

PATIENT
  Age: 78 Year
  Sex: Male

DRUGS (1)
  1. ELTROMBOPAG [Suspect]
     Active Substance: ELTROMBOPAG
     Indication: IMMUNE THROMBOCYTOPENIC PURPURA
     Dosage: 37.5 TO 50 MG, QD
     Route: 048

REACTIONS (8)
  - Acute myeloid leukaemia [Unknown]
  - Pyrexia [Recovered/Resolved]
  - Night sweats [Recovered/Resolved]
  - Thrombocytopenia [Unknown]
  - Myelodysplastic syndrome [Unknown]
  - Cytogenetic abnormality [Unknown]
  - Anaemia [Unknown]
  - Myelofibrosis [Unknown]
